FAERS Safety Report 8601564 (Version 5)
Quarter: 2013Q4

REPORT INFORMATION
  Report Type: Spontaneous
  Country: US (occurrence: US)
  Receive Date: 20120606
  Receipt Date: 20131014
  Transmission Date: 20140711
  Serious: Yes (Other)
  Sender: FDA-Public Use
  Company Number: US-PFIZER INC-2012131480

PATIENT
  Age: 57 Year
  Sex: Male
  Weight: 113 kg

DRUGS (5)
  1. LYRICA [Suspect]
     Indication: NEURALGIA
     Dosage: 150 MG, 2X/DAY
     Route: 048
  2. LYRICA [Suspect]
     Indication: DIABETIC NEUROPATHY
  3. METFORMIN [Concomitant]
     Dosage: UNK
  4. PROMETHAZINE [Concomitant]
     Dosage: 25 MG, UNK
  5. SOMA [Concomitant]
     Dosage: 350 MG, UNK

REACTIONS (3)
  - Diverticulitis [Unknown]
  - Arthropathy [Unknown]
  - Peripheral arterial occlusive disease [Unknown]
